FAERS Safety Report 19382542 (Version 2)
Quarter: 2021Q2

REPORT INFORMATION
  Report Type: Spontaneous
  Country: US (occurrence: US)
  Receive Date: 20210607
  Receipt Date: 20210623
  Transmission Date: 20210717
  Serious: No
  Sender: FDA-Public Use
  Company Number: US-ORGANON-O2106USA000364

PATIENT
  Age: 46 Year
  Sex: Female
  Weight: 61.22 kg

DRUGS (4)
  1. VITAMIN B COMPLEX [Concomitant]
     Active Substance: CYANOCOBALAMIN\DEXPANTHENOL\NIACINAMIDE\PYRIDOXINE HYDROCHLORIDE\RIBOFLAVIN 5^-PHOSPHATE SODIUM\THIAMINE HYDROCHLORIDE\VITAMIN B COMPLEX
     Dosage: UNK
  2. NEXIUM I.V. [Concomitant]
     Active Substance: ESOMEPRAZOLE SODIUM
     Dosage: UNK
  3. NEXPLANON [Suspect]
     Active Substance: ETONOGESTREL
     Indication: CONTRACEPTION
     Dosage: 1 ROD/ 3 YEARS, RIGHT ARM, EXPIRATION DATE REPORTED AS 3 YEARS (REPORTED AS USDERSKIN)
     Route: 059
     Dates: start: 20210324
  4. CIMETIDINE [Concomitant]
     Active Substance: CIMETIDINE
     Dosage: UNK, REPORTED AS ^CIMETIDINE 200^

REACTIONS (2)
  - Heavy menstrual bleeding [Not Recovered/Not Resolved]
  - Menstruation irregular [Not Recovered/Not Resolved]

NARRATIVE: CASE EVENT DATE: 20210324
